FAERS Safety Report 5087725-2 (Version None)
Quarter: 2006Q3

REPORT INFORMATION
  Report Type: 
  Country: None (occurrence: None)
  Receive Date: 20060824
  Receipt Date: 20060816
  Transmission Date: 20061208
  Serious: Yes (Other)
  Sender: FDA-Public Use
  Company Number: GR-SANOFI-SYNTHELABO-F01200601848

PATIENT
  Age: 67 Year
  Sex: Male
  Weight: 90 kg

DRUGS (6)
  1. ELOXATIN [Suspect]
     Dosage: PRE-FILLED SYRINGES
     Route: 042
     Dates: start: 20060720, end: 20060720
  2. LISINOPRIL [Concomitant]
     Indication: HYPERTENSION
     Route: 048
     Dates: start: 20030101
  3. LOPERAMIDE [Concomitant]
     Route: 048
     Dates: start: 20030101
  4. GLIMEPIRIDE [Concomitant]
     Indication: DIABETES MELLITUS NON-INSULIN-DEPENDENT
     Route: 048
     Dates: start: 20030101
  5. DOLASETRON [Concomitant]
     Indication: VOMITING
     Route: 042
     Dates: start: 20060720, end: 20060721
  6. CALCIUM FOLINATE [Concomitant]
     Route: 042
     Dates: start: 20060720, end: 20060721

REACTIONS (4)
  - ERYTHEMA [None]
  - HOT FLUSH [None]
  - HYPOAESTHESIA [None]
  - PROLONGED EXPIRATION [None]
